FAERS Safety Report 7930695-7 (Version None)
Quarter: 2011Q4

REPORT INFORMATION
  Report Type: 
  Country: None (occurrence: None)
  Receive Date: 20111117
  Receipt Date: 20111117
  Transmission Date: 20120403
  Serious: Yes (Hospitalization)
  Sender: FDA-Public Use
  Company Number: None

PATIENT
  Sex: Male
  Weight: 80.37 kg

DRUGS (2)
  1. ERLOTINIB HYDROCHLORIDE [Suspect]
     Indication: NON-SMALL CELL LUNG CANCER
     Dosage: 150MG QD PO
     Route: 048
     Dates: start: 20110921, end: 20111114
  2. CETUXIMAB [Suspect]
     Indication: NON-SMALL CELL LUNG CANCER
     Dosage: 250MG/M2 ONCE/WEEK IV
     Route: 042
     Dates: start: 20110921, end: 20111109

REACTIONS (3)
  - PULMONARY EMBOLISM [None]
  - NON-SMALL CELL LUNG CANCER METASTATIC [None]
  - NEOPLASM PROGRESSION [None]
